FAERS Safety Report 4738327-6 (Version None)
Quarter: 2005Q3

REPORT INFORMATION
  Report Type: 
  Country: None (occurrence: None)
  Receive Date: 20050809
  Receipt Date: 20050729
  Transmission Date: 20060218
  Serious: Yes (Death, Life-Threatening)
  Sender: FDA-Public Use
  Company Number: JP-JNJFOC-20050704140

PATIENT
  Age: 66 Year
  Sex: Male

DRUGS (5)
  1. RISPERDAL [Suspect]
     Route: 048
  2. RISPERDAL [Suspect]
     Route: 048
  3. HALDOL [Suspect]
     Dates: start: 20050708, end: 20050712
  4. LEVOMEPROMAZINE MALEATE [Concomitant]
     Dosage: 5-25 MG PER DAY
     Route: 048
  5. FLUNITRAZEPAM [Concomitant]
     Route: 048

REACTIONS (2)
  - ARRHYTHMIA [None]
  - CEREBRAL INFARCTION [None]
